FAERS Safety Report 8817122 (Version 1)
Quarter: 2012Q4

REPORT INFORMATION
  Report Type: Spontaneous
  Country: US (occurrence: None)
  Receive Date: 20121003
  Receipt Date: 20121003
  Transmission Date: 20130627
  Serious: Yes (Other)
  Sender: FDA-Public Use
  Company Number: None

PATIENT
  Age: 57 Year
  Sex: Male
  Weight: 73.48 kg

DRUGS (1)
  1. TESTOSTERONE [Suspect]
     Indication: LIBIDO DECREASED
     Route: 003
     Dates: start: 20120420, end: 20120620

REACTIONS (2)
  - Anger [None]
  - Abnormal behaviour [None]
